FAERS Safety Report 6498966-1 (Version None)
Quarter: 2009Q4

REPORT INFORMATION
  Report Type: 
  Country: None (occurrence: None)
  Receive Date: 20091215
  Receipt Date: 20091201
  Transmission Date: 20100525
  Serious: Yes (Hospitalization)
  Sender: FDA-Public Use
  Company Number: DE-MYLANLABS-2009S1020666

PATIENT
  Age: 10 Year
  Sex: Male

DRUGS (2)
  1. FENTANYL [Suspect]
     Indication: ACCIDENTAL EXPOSURE
     Dosage: TWO FENTANYL 100 MCG/H PATCHES
     Route: 062
  2. DEXPANTHENOL [Concomitant]
     Indication: EXCORIATION
     Route: 061

REACTIONS (5)
  - ACCIDENTAL OVERDOSE [None]
  - DEPRESSED LEVEL OF CONSCIOUSNESS [None]
  - MEDICATION ERROR [None]
  - RESPIRATORY DEPRESSION [None]
  - VOMITING [None]
